FAERS Safety Report 24281130 (Version 2)
Quarter: 2024Q3

REPORT INFORMATION
  Report Type: Spontaneous
  Country: DE (occurrence: DE)
  Receive Date: 20240904
  Receipt Date: 20240918
  Transmission Date: 20241017
  Serious: Yes (Death, Hospitalization, Other)
  Sender: AUROBINDO
  Company Number: DE-PFIZER INC-202200193545

PATIENT
  Age: 80 Year
  Sex: Female
  Weight: 60 kg

DRUGS (4)
  1. LETROZOLE [Suspect]
     Active Substance: LETROZOLE
     Indication: Breast cancer
     Dosage: 2.5 MILLIGRAM, ONCE A DAY
     Route: 048
     Dates: start: 20210622, end: 20230719
  2. PALBOCICLIB [Suspect]
     Active Substance: PALBOCICLIB
     Indication: Breast cancer
     Dosage: 125 MILLIGRAM, CYCLICAL (DAILY FROM DAY 1 TO DAY 21 EVERY 28 DAY CYCLE)
     Route: 048
     Dates: start: 20210622
  3. PALBOCICLIB [Suspect]
     Active Substance: PALBOCICLIB
     Indication: Breast cancer
     Dosage: 125.0 MILLIGRAM, CYCLICAL(125 MG, DAILY FROM DAY 1 TO DAY 21 EVERY 28 DAY CYCLE)
     Route: 048
     Dates: start: 20210622
  4. XGEVA [Concomitant]
     Active Substance: DENOSUMAB
     Indication: Prophylaxis
     Dosage: UNK
     Route: 058
     Dates: start: 20210621

REACTIONS (4)
  - Death [Fatal]
  - Blood creatinine increased [Recovering/Resolving]
  - Diarrhoea [Recovered/Resolved]
  - Nausea [Unknown]

NARRATIVE: CASE EVENT DATE: 20220129
